FAERS Safety Report 8458730 (Version 5)
Quarter: 2015Q2

REPORT INFORMATION
  Report Type: Report from Study
  Country: NL (occurrence: NL)
  Receive Date: 20120314
  Receipt Date: 20150428
  Transmission Date: 20150821
  Serious: Yes (Hospitalization)
  Sender: FDA-Public Use
  Company Number: NL-ROCHE-1044975

PATIENT
  Age: 76 Year
  Sex: Female
  Weight: 69 kg

DRUGS (7)
  1. AMLODIPINE [Suspect]
     Active Substance: AMLODIPINE BESYLATE
     Indication: HYPERTENSION
     Route: 048
  2. DOXORUBICIN HYDROCHLORIDE. [Suspect]
     Active Substance: DOXORUBICIN HYDROCHLORIDE
     Indication: DIFFUSE LARGE B-CELL LYMPHOMA
     Dosage: LAST DOSE PRIOR TO SAE ON 02/AUG/2011
     Route: 042
     Dates: start: 20110523
  3. RITUXIMAB [Suspect]
     Active Substance: RITUXIMAB
     Indication: DIFFUSE LARGE B-CELL LYMPHOMA
     Dosage: LAST DOSE PROR TO SAE ON 29/SEP/2011
     Route: 042
     Dates: start: 20110523
  4. CYCLOPHOSPHAMIDE. [Suspect]
     Active Substance: CYCLOPHOSPHAMIDE
     Indication: DIFFUSE LARGE B-CELL LYMPHOMA
     Dosage: LAST DOSE PRIOR TO SAE: 02/AUG/2011
     Route: 042
     Dates: start: 20110523
  5. VINCRISTINE [Suspect]
     Active Substance: VINCRISTINE
     Indication: DIFFUSE LARGE B-CELL LYMPHOMA
     Dosage: LAST DOSE PROR TO SAE ON 02/AUG/2011
     Route: 042
     Dates: start: 20110523
  6. PREDNISONE. [Suspect]
     Active Substance: PREDNISONE
     Indication: DIFFUSE LARGE B-CELL LYMPHOMA
     Dosage: LAST DOSE PRIOR TO SAE: 06/AUG/2011
     Route: 048
     Dates: start: 20110519
  7. FILGRASTIM [Suspect]
     Active Substance: FILGRASTIM
     Indication: DIFFUSE LARGE B-CELL LYMPHOMA
     Dosage: LAST DOSE PRIOR TO SAE ON 03/AUG/2011
     Route: 058
     Dates: start: 20110524

REACTIONS (2)
  - Orthostatic hypotension [Not Recovered/Not Resolved]
  - Facial nerve disorder [Not Recovered/Not Resolved]

NARRATIVE: CASE EVENT DATE: 20120210
